FAERS Safety Report 15356328 (Version 1)
Quarter: 2018Q3

REPORT INFORMATION
  Report Type: Spontaneous
  Country: US (occurrence: US)
  Receive Date: 20180830
  Receipt Date: 20180830
  Transmission Date: 20181010
  Serious: No
  Sender: FDA-Public Use
  Company Number: None

PATIENT
  Age: 66 Year
  Sex: Male

DRUGS (1)
  1. TETRABENAZINE 25MG SUN [Suspect]
     Active Substance: TETRABENAZINE
     Indication: DYSKINESIA
     Route: 048
     Dates: start: 20160726, end: 20180723

REACTIONS (3)
  - Seizure [None]
  - Tremor [None]
  - Muscle spasms [None]

NARRATIVE: CASE EVENT DATE: 20180702
